FAERS Safety Report 12331709 (Version 1)
Quarter: 2016Q2

REPORT INFORMATION
  Report Type: Spontaneous
  Country: ES (occurrence: ES)
  Receive Date: 20160504
  Receipt Date: 20160504
  Transmission Date: 20160815
  Serious: Yes (Other)
  Sender: FDA-Public Use
  Company Number: ES-PFIZER INC-2016237449

PATIENT
  Age: 81 Year
  Sex: Female

DRUGS (8)
  1. OMEPRAZOL [Suspect]
     Active Substance: OMEPRAZOLE
     Dosage: 1 CAPSULE OF 20 MG AT NOON
     Route: 048
     Dates: start: 20150728
  2. DEPRAX /00447702/ [Suspect]
     Active Substance: TRAZODONE HYDROCHLORIDE
     Dosage: 50 MG, 1X/DAY
     Route: 048
     Dates: start: 20160208
  3. MEMANTINA [Suspect]
     Active Substance: MEMANTINE HYDROCHLORIDE
     Dosage: 1 TABLET OF 20MG, 1X/DAY (IN THE MORNING)
     Route: 048
     Dates: start: 20151021
  4. GALANTAMINA [Suspect]
     Active Substance: GALANTAMINE HYDROBROMIDE
     Dosage: 12 MG, 12H
     Route: 048
     Dates: start: 20151125
  5. IDEOS UNIDIA [Suspect]
     Active Substance: CALCIUM CARBONATE\CHOLECALCIFEROL
     Dosage: 1 SACHET, 24 H
     Route: 048
     Dates: start: 20151013
  6. RISPERIDONA [Suspect]
     Active Substance: RISPERIDONE
     Dosage: 1 TABLET OF 0,5 MG (1 IN THE MORNING AND 1 AT NIGHT)
     Route: 048
     Dates: start: 20150831
  7. CITALOPRAM [Suspect]
     Active Substance: CITALOPRAM HYDROBROMIDE
     Dosage: 20 MG, UNK
     Route: 048
     Dates: start: 20150728
  8. LYRICA [Suspect]
     Active Substance: PREGABALIN
     Dosage: 50 MG IN THE MORNING AND 50 AT NIGHT
     Route: 048
     Dates: start: 20150728

REACTIONS (3)
  - Tooth disorder [Not Recovered/Not Resolved]
  - Tooth loss [Not Recovered/Not Resolved]
  - Tooth discolouration [Not Recovered/Not Resolved]

NARRATIVE: CASE EVENT DATE: 20160309
